FAERS Safety Report 12758866 (Version 1)
Quarter: 2016Q3

REPORT INFORMATION
  Report Type: Spontaneous
  Country: US (occurrence: US)
  Receive Date: 20160919
  Receipt Date: 20160919
  Transmission Date: 20161109
  Serious: Yes (Other)
  Sender: FDA-Public Use
  Company Number: US-TEVA-692549USA

PATIENT
  Sex: Female

DRUGS (1)
  1. AMPHETAMINE W/DEXTROAMPHETAMINE [Suspect]
     Active Substance: AMPHETAMINE SULFATE\DEXTROAMPHETAMINE
     Route: 065
     Dates: start: 2016

REACTIONS (6)
  - Anxiety [Unknown]
  - Panic attack [Unknown]
  - Feeling of despair [Unknown]
  - Suicidal ideation [Unknown]
  - Aphasia [Unknown]
  - Fear [Unknown]

NARRATIVE: CASE EVENT DATE: 2016
